FAERS Safety Report 6747607-4 (Version None)
Quarter: 2010Q2

REPORT INFORMATION
  Report Type: 
  Country: None (occurrence: None)
  Receive Date: 20100528
  Receipt Date: 20100524
  Transmission Date: 20101027
  Serious: No
  Sender: FDA-Public Use
  Company Number: US-BAYER-201021762NA

PATIENT
  Age: 51 Year
  Sex: Female

DRUGS (1)
  1. MAGNEVIST [Suspect]
     Indication: NUCLEAR MAGNETIC RESONANCE IMAGING
     Dosage: TOTAL DAILY DOSE: 20 ML  UNIT DOSE: 50 ML
     Route: 042
     Dates: start: 20100505, end: 20100505

REACTIONS (5)
  - COUGH [None]
  - FEELING HOT [None]
  - FLUSHING [None]
  - POSTNASAL DRIP [None]
  - THROAT TIGHTNESS [None]
